FAERS Safety Report 16736349 (Version 1)
Quarter: 2019Q3

REPORT INFORMATION
  Report Type: Spontaneous
  Country: US (occurrence: US)
  Receive Date: 20190823
  Receipt Date: 20190823
  Transmission Date: 20191005
  Serious: No
  Sender: FDA-Public Use
  Company Number: US-SA-2019SA230519

PATIENT
  Age: 37 Year
  Sex: Female
  Weight: 83 kg

DRUGS (6)
  1. NORMAL SALINE [Concomitant]
     Active Substance: SODIUM CHLORIDE
     Indication: FLUSHING
     Dosage: 0.90 %, UNK
     Route: 041
     Dates: start: 20190817
  2. STERILE WATER [Concomitant]
     Active Substance: WATER
     Dosage: 5 ML, UNK
     Route: 041
     Dates: start: 20190817
  3. EPINEPHRINE. [Concomitant]
     Active Substance: EPINEPHRINE
     Dosage: 0.3 MG, UNK
     Route: 041
     Dates: start: 20190718
  4. SYNTHROID [Concomitant]
     Active Substance: LEVOTHYROXINE SODIUM
     Dosage: 1 U, QD
     Route: 048
     Dates: start: 20190817
  5. SODIUM CHLORIDE. [Concomitant]
     Active Substance: SODIUM CHLORIDE
     Indication: FLUSHING
     Dosage: 0.90 %, UNK
     Route: 041
     Dates: start: 20190817
  6. CEREZYME [Suspect]
     Active Substance: IMIGLUCERASE
     Indication: GAUCHER^S DISEASE
     Dosage: 4000 IU, QOW
     Route: 041
     Dates: start: 20130930

REACTIONS (2)
  - Chest discomfort [Unknown]
  - Product use issue [Unknown]
